FAERS Safety Report 8243536-8 (Version None)
Quarter: 2012Q1

REPORT INFORMATION
  Report Type: 
  Country: None (occurrence: None)
  Receive Date: 20120329
  Receipt Date: 20120322
  Transmission Date: 20120608
  Serious: Yes (Hospitalization)
  Sender: FDA-Public Use
  Company Number: PHHY2012BE024218

PATIENT
  Age: 68 Year
  Sex: Male

DRUGS (2)
  1. SPIRIVA [Concomitant]
  2. ONBREZ [Suspect]
     Indication: CHRONIC OBSTRUCTIVE PULMONARY DISEASE
     Dosage: 150 UG, DAILY
     Dates: start: 20120314

REACTIONS (3)
  - RESPIRATORY DISORDER [None]
  - BRONCHOSPASM [None]
  - PANIC REACTION [None]
